FAERS Safety Report 17108926 (Version 4)
Quarter: 2020Q2

REPORT INFORMATION
  Report Type: Report from Study
  Country: IT (occurrence: IT)
  Receive Date: 20191204
  Receipt Date: 20200418
  Transmission Date: 20200713
  Serious: Yes (Hospitalization)
  Sender: FDA-Public Use
  Company Number: IT-ROCHE-2465025

PATIENT
  Age: 60 Year
  Sex: Female
  Weight: 62 kg

DRUGS (11)
  1. IRINOTECAN [Suspect]
     Active Substance: IRINOTECAN
     Indication: COLORECTAL CANCER METASTATIC
     Dosage: ON 09/DEC/2019, THERAPY WAS RESTARTED.?DATE OF MOST RECENT ADMINISTRATION PRIOR TO SAE: 29/JAN/2020.
     Route: 042
     Dates: start: 20191016
  2. 5-FU [FLUOROURACIL] [Suspect]
     Active Substance: FLUOROURACIL
     Indication: COLORECTAL CANCER METASTATIC
     Dosage: ON 09/DEC/2019, THERAPY WAS RESTARTED.?DATE OF MOST RECENT ADMINISTRATION PRIOR TO SAE: 29/JAN/2020.
     Route: 042
     Dates: start: 20191016
  3. RAMIPRIL. [Concomitant]
     Active Substance: RAMIPRIL
     Indication: HYPERTENSION
     Dosage: SINCE 30/MAR/2020 FREQUENCY OF ADMINISTRATION IS EVERY OTHER DAY.
     Route: 048
  4. ATEZOLIZUMAB. [Suspect]
     Active Substance: ATEZOLIZUMAB
     Indication: COLORECTAL CANCER METASTATIC
     Dosage: OVER 30 MINUTES (60 MINUTES AT THE FIRST INFUSION) DAY 1?ON 09/DEC/2019, THERAPY WITH ATEZOLIZUMAB W
     Route: 042
     Dates: start: 20191016
  5. ASPIRIN [ACETYLSALICYLIC ACID] [Concomitant]
     Active Substance: ASPIRIN
     Indication: PROPHYLAXIS
     Route: 048
     Dates: start: 20190820
  6. PROBIOTICS NOS [Concomitant]
     Active Substance: PROBIOTICS NOS
     Indication: DIARRHOEA
     Route: 048
     Dates: start: 20191119
  7. OXALIPLATIN. [Suspect]
     Active Substance: OXALIPLATIN
     Indication: COLORECTAL CANCER METASTATIC
     Dosage: ON 09/DEC/2019, THERAPY WAS RESTARTED.?DATE OF MOST RECENT ADMINISTRATION PRIOR TO SAE: 29/JAN/2020.
     Route: 042
     Dates: start: 20191016
  8. LEUCOVORIN [FOLINIC ACID] [Suspect]
     Active Substance: LEUCOVORIN
     Indication: COLORECTAL CANCER METASTATIC
     Dosage: ON 09/DEC/2019, THERAPY WAS RESTARTED.?DATE OF MOST RECENT ADMINISTRATION PRIOR TO SAE: 29/JAN/2020.
     Route: 042
     Dates: start: 20191016
  9. PANTOPRAZOLE [Concomitant]
     Active Substance: PANTOPRAZOLE
     Indication: PROPHYLAXIS
     Dosage: SINCE 30/MAR/2020 FREQUENCY OF ADMINISTRATION IS EVERY OTHER DAY.
     Route: 048
     Dates: start: 20191119
  10. PREDNISONE. [Concomitant]
     Active Substance: PREDNISONE
     Indication: ENTERITIS
     Dosage: SINCE 30/MAR/2020 FREQUENCY OF ADMINISTRATION IS EVERY OTHER DAY.
     Route: 048
     Dates: start: 20191214
  11. BEVACIZUMAB. [Suspect]
     Active Substance: BEVACIZUMAB
     Indication: COLORECTAL CANCER METASTATIC
     Dosage: ON 09/DEC/2019, THERAPY WAS RESTARTED.?DATE OF MOS RECENT ADMINISTRATION PRIOR TO SAE: 29/OCT/2019
     Route: 042
     Dates: start: 20191016

REACTIONS (4)
  - Diarrhoea [Recovered/Resolved]
  - Colitis [Recovered/Resolved with Sequelae]
  - Febrile neutropenia [Recovered/Resolved with Sequelae]
  - Enteritis [Recovered/Resolved]

NARRATIVE: CASE EVENT DATE: 20191029
